FAERS Safety Report 8360347-3 (Version None)
Quarter: 2012Q2

REPORT INFORMATION
  Report Type: 
  Country: None (occurrence: None)
  Receive Date: 20120515
  Receipt Date: 20120502
  Transmission Date: 20120825
  Serious: Yes (Hospitalization, Disabling, Congenital Anomaly)
  Sender: FDA-Public Use
  Company Number: FR-TEVA-7048238

PATIENT
  Age: 33 Year
  Sex: Female

DRUGS (2)
  1. LEVONORGESTREL [Suspect]
     Indication: CONTRACEPTION
     Dosage: 1 DOSAGE FORMS;
     Route: 048
     Dates: start: 20101112
  2. PROCUTA [Suspect]
     Indication: ACNE
     Dosage: 50 MILLIGRAM;
     Route: 048
     Dates: start: 20101112

REACTIONS (4)
  - SUSAC'S SYNDROME [None]
  - ENCEPHALOPATHY [None]
  - ARTERIAL DISORDER [None]
  - HYPOACUSIS [None]
